FAERS Safety Report 7307522-4 (Version None)
Quarter: 2011Q1

REPORT INFORMATION
  Report Type: 
  Country: None (occurrence: None)
  Receive Date: 20110223
  Receipt Date: 20110217
  Transmission Date: 20110831
  Serious: Yes (Other)
  Sender: FDA-Public Use
  Company Number: US-JNJFOC-20110205677

PATIENT
  Age: 78 Year
  Sex: Female
  Weight: 63.5 kg

DRUGS (10)
  1. VITAMIN TAB [Concomitant]
     Indication: MEDICAL DIET
     Dosage: 1 TABLET 1 DAILY
     Route: 065
  2. ATENOLOL [Concomitant]
     Indication: HYPERTENSION
     Route: 065
  3. COUMADIN [Concomitant]
     Indication: ATRIAL FIBRILLATION
     Dosage: 1- 1.5 TABS A DAY
     Route: 065
  4. EXTRA STRENGTH TYLENOL [Suspect]
     Indication: INSOMNIA
     Route: 048
  5. DIOVAN [Concomitant]
     Indication: HYPERTENSION
     Route: 065
  6. LEXAPRO [Concomitant]
     Indication: ANTIDEPRESSANT THERAPY
     Route: 065
  7. VITAMIN D [Concomitant]
     Indication: MEDICAL DIET
     Dosage: 1 TABLET, 1 DAILY
     Route: 065
  8. EXTRA STRENGTH TYLENOL [Suspect]
     Route: 048
  9. ZOCOR [Concomitant]
     Indication: BLOOD CHOLESTEROL INCREASED
     Route: 065
  10. VITAMIN A [Concomitant]
     Indication: MEDICAL DIET
     Dosage: 1 TABLET DAILY
     Route: 065

REACTIONS (2)
  - EXPIRED DRUG ADMINISTERED [None]
  - HALLUCINATION, VISUAL [None]
